FAERS Safety Report 23553490 (Version 1)
Quarter: 2024Q1

REPORT INFORMATION
  Report Type: Spontaneous
  Country: GB (occurrence: GB)
  Receive Date: 20240222
  Receipt Date: 20240222
  Transmission Date: 20240410
  Serious: Yes (Other)
  Sender: FDA-Public Use
  Company Number: None

PATIENT
  Age: 56 Year
  Sex: Female
  Weight: 79 kg

DRUGS (4)
  1. DOXYCYCLINE [Suspect]
     Active Substance: DOXYCYCLINE
     Indication: Ill-defined disorder
     Dosage: UNK
     Route: 065
     Dates: start: 20240214
  2. DOXYCYCLINE [Concomitant]
     Active Substance: DOXYCYCLINE
     Indication: Ill-defined disorder
     Dosage: UNK, QD (TAKE ONE CAPSULE EACH MORNING)
     Route: 065
     Dates: start: 20240207, end: 20240214
  3. ERYTHROMYCIN [Concomitant]
     Active Substance: ERYTHROMYCIN
     Indication: Ill-defined disorder
     Dosage: UNK, BID (TAKE TWO TABLETS TWICE DAILY FOR LONG TERM INFE)
     Route: 065
     Dates: start: 20240214
  4. SOOLANTRA [Concomitant]
     Active Substance: IVERMECTIN
     Indication: Ill-defined disorder
     Dosage: UNK, QD (APPLY ONCE A DAY AS DIRECTED)
     Route: 065
     Dates: start: 20240207

REACTIONS (1)
  - Pruritus [Recovered/Resolved]

NARRATIVE: CASE EVENT DATE: 20240215
